FAERS Safety Report 24851708 (Version 1)
Quarter: 2025Q1

REPORT INFORMATION
  Report Type: Spontaneous
  Country: US (occurrence: US)
  Receive Date: 20250116
  Receipt Date: 20250116
  Transmission Date: 20250408
  Serious: No
  Sender: SK LIFE SCIENCE
  Company Number: US-SK LIFE SCIENCE, INC-SKPVG-2024-001696

PATIENT

DRUGS (3)
  1. XCOPRI [Suspect]
     Active Substance: CENOBAMATE
     Indication: Seizure
     Dosage: UNK, BEDTIME
  2. XCOPRI [Suspect]
     Active Substance: CENOBAMATE
     Dosage: 300MG (200MG+100MG), ONCE A DAY AT BEDTIME
  3. XCOPRI [Suspect]
     Active Substance: CENOBAMATE
     Dosage: 300MG (200MG+100MG), ONCE A DAY AT BEDTIME

REACTIONS (3)
  - Off label use [Not Recovered/Not Resolved]
  - Product physical issue [Recovered/Resolved]
  - Wrong technique in product usage process [Not Recovered/Not Resolved]

NARRATIVE: CASE EVENT DATE: 20240615
